FAERS Safety Report 25599034 (Version 1)
Quarter: 2025Q3

REPORT INFORMATION
  Report Type: Report from Study
  Country: BR (occurrence: BR)
  Receive Date: 20250724
  Receipt Date: 20250724
  Transmission Date: 20251020
  Serious: Yes (Hospitalization)
  Sender: JOHNSON AND JOHNSON
  Company Number: BR-JNJFOC-20250719964

PATIENT
  Age: 58 Year
  Sex: Female

DRUGS (3)
  1. GOLIMUMAB [Suspect]
     Active Substance: GOLIMUMAB
     Indication: Rheumatoid arthritis
     Route: 058
     Dates: end: 202506
  2. GOLIMUMAB [Suspect]
     Active Substance: GOLIMUMAB
  3. LEFLUNOMIDE [Concomitant]
     Active Substance: LEFLUNOMIDE
     Indication: Product used for unknown indication

REACTIONS (9)
  - Tuberculosis [Not Recovered/Not Resolved]
  - Anaemia [Not Recovered/Not Resolved]
  - Endocarditis [Unknown]
  - Helicobacter infection [Unknown]
  - Oral herpes [Unknown]
  - Abdominal pain [Unknown]
  - Dehydration [Not Recovered/Not Resolved]
  - Gastric ulcer [Unknown]
  - Urinary tract infection [Unknown]

NARRATIVE: CASE EVENT DATE: 20240601
